FAERS Safety Report 7759554-X (Version None)
Quarter: 2011Q3

REPORT INFORMATION
  Report Type: 
  Country: None (occurrence: None)
  Receive Date: 20110919
  Receipt Date: 20110909
  Transmission Date: 20111222
  Serious: Yes (Other)
  Sender: FDA-Public Use
  Company Number: US-ROCHE-781904

PATIENT
  Sex: Female
  Weight: 70.3 kg

DRUGS (2)
  1. ACCUTANE [Suspect]
     Route: 065
     Dates: start: 19830101, end: 19840101
  2. ACCUTANE [Suspect]
     Route: 065
     Dates: start: 20050501, end: 20050801

REACTIONS (8)
  - RECTAL HAEMORRHAGE [None]
  - IRRITABLE BOWEL SYNDROME [None]
  - ANXIETY DISORDER [None]
  - DIVERTICULITIS [None]
  - DRY SKIN [None]
  - INFLAMMATORY BOWEL DISEASE [None]
  - COLITIS ULCERATIVE [None]
  - ABDOMINAL PAIN [None]
